FAERS Safety Report 20610095 (Version 1)
Quarter: 2022Q1

REPORT INFORMATION
  Report Type: Spontaneous
  Country: FR (occurrence: FR)
  Receive Date: 20220318
  Receipt Date: 20220318
  Transmission Date: 20220424
  Serious: Yes (Congenital Anomaly, Other)
  Sender: FDA-Public Use
  Company Number: FR-ABBVIE-22K-056-4321472-00

PATIENT

DRUGS (2)
  1. VALPROATE SODIUM [Suspect]
     Active Substance: VALPROATE SODIUM
     Indication: Maternal exposure timing unspecified
     Route: 064
  2. VALPROATE SODIUM [Suspect]
     Active Substance: VALPROATE SODIUM
     Indication: Maternal exposure timing unspecified
     Route: 064

REACTIONS (12)
  - Joint hyperextension [Unknown]
  - Lordosis [Unknown]
  - Scoliosis [Unknown]
  - Behaviour disorder [Unknown]
  - Fine motor skill dysfunction [Unknown]
  - Dysgraphia [Unknown]
  - Psychomotor skills impaired [Unknown]
  - Atrophy [Unknown]
  - Joint hyperextension [Unknown]
  - Ear, nose and throat disorder [Unknown]
  - Disturbance in attention [Unknown]
  - Foetal exposure during pregnancy [Unknown]

NARRATIVE: CASE EVENT DATE: 19881216
